FAERS Safety Report 14485568 (Version 3)
Quarter: 2018Q4

REPORT INFORMATION
  Report Type: Spontaneous
  Country: JP (occurrence: JP)
  Receive Date: 20180205
  Receipt Date: 20181023
  Transmission Date: 20190204
  Serious: Yes (Hospitalization, Other)
  Sender: FDA-Public Use
  Company Number: JP-PFIZER INC-2018045993

PATIENT
  Age: 66 Year
  Sex: Male

DRUGS (7)
  1. AXITINIB [Suspect]
     Active Substance: AXITINIB
     Dosage: 12 MG, DAILY
     Dates: start: 201405
  2. SORAFENIB [Suspect]
     Active Substance: SORAFENIB
     Indication: RENAL CELL CARCINOMA
     Dosage: 800 MG, DAILY
     Dates: start: 201010
  3. AXITINIB [Suspect]
     Active Substance: AXITINIB
     Indication: RENAL CELL CARCINOMA
     Dosage: 10 MG, DAILY
     Dates: start: 201301
  4. SORAFENIB [Suspect]
     Active Substance: SORAFENIB
     Dosage: 400 MG, DAILY
     Dates: start: 201103
  5. AXITINIB [Suspect]
     Active Substance: AXITINIB
     Dosage: 14 MG, DAILY
     Dates: start: 201512
  6. AXITINIB [Suspect]
     Active Substance: AXITINIB
     Dosage: 6 MG, DAILY
     Dates: start: 2013
  7. AXITINIB [Suspect]
     Active Substance: AXITINIB
     Dosage: 10 MG, DAILY
     Dates: start: 2013

REACTIONS (2)
  - Cardiac dysfunction [Recovering/Resolving]
  - Aortic dissection [Recovering/Resolving]
